FAERS Safety Report 6293047-4 (Version None)
Quarter: 2009Q3

REPORT INFORMATION
  Report Type: 
  Country: None (occurrence: None)
  Receive Date: 20090731
  Receipt Date: 20090728
  Transmission Date: 20100115
  Serious: Yes (Death, Life-Threatening)
  Sender: FDA-Public Use
  Company Number: JP-BRISTOL-MYERS SQUIBB COMPANY-14699441

PATIENT
  Age: 56 Year
  Sex: Female
  Weight: 50 kg

DRUGS (5)
  1. SPRYCEL [Suspect]
     Indication: CHRONIC MYELOID LEUKAEMIA
     Dosage: 90MG/DAY 06FEB-09FEB2009;70X2MG/DAY 17FEB-20FEB2009;100X1MG/DAY 11MAR2009-ONG
     Route: 048
     Dates: start: 20090206
  2. CHEMOTHERAPY [Suspect]
     Indication: CHRONIC MYELOID LEUKAEMIA
     Dates: start: 20090210, end: 20090303
  3. FUROSEMIDE [Concomitant]
     Dosage: INJECTION
     Route: 042
     Dates: start: 20090224, end: 20090331
  4. MAXIPIME [Concomitant]
     Indication: PROPHYLAXIS
     Dosage: INJECTION
     Route: 042
     Dates: start: 20090220, end: 20090225
  5. POLYETHYLENE GLYCOL [Concomitant]
     Indication: PROPHYLAXIS
     Dosage: INJECTION POLYETHYLENE GLYCOL TREATED HUMAN
     Route: 042
     Dates: start: 20090223, end: 20090225

REACTIONS (6)
  - ANAEMIA [None]
  - GENERALISED OEDEMA [None]
  - MALIGNANT NEOPLASM PROGRESSION [None]
  - NEUTROPHIL COUNT DECREASED [None]
  - PLATELET COUNT DECREASED [None]
  - WHITE BLOOD CELL COUNT DECREASED [None]
